FAERS Safety Report 8531238-X (Version None)
Quarter: 2012Q3

REPORT INFORMATION
  Report Type: 
  Country: None (occurrence: None)
  Receive Date: 20120723
  Receipt Date: 20120716
  Transmission Date: 20120928
  Serious: Yes (Other)
  Sender: FDA-Public Use
  Company Number: GB-PFIZER INC-2012170249

PATIENT
  Sex: Female

DRUGS (2)
  1. PHENYTOIN [Suspect]
     Indication: NERVOUS SYSTEM DISORDER
     Dosage: UNK
  2. VEMURAFENIB [Interacting]
     Indication: MALIGNANT MELANOMA
     Dosage: 960 UNK, 2X/DAY

REACTIONS (3)
  - CONVULSION [None]
  - DRUG INTERACTION [None]
  - CONDITION AGGRAVATED [None]
